FAERS Safety Report 10514258 (Version 1)
Quarter: 2014Q4

REPORT INFORMATION
  Report Type: Report from Study
  Country: BR (occurrence: BR)
  Receive Date: 20141013
  Receipt Date: 20141013
  Transmission Date: 20150528
  Serious: Yes (Death, Hospitalization, Other)
  Sender: FDA-Public Use
  Company Number: BR-ABBVIE-14K-020-1293815-00

PATIENT
  Age: 74 Year
  Sex: Female
  Weight: 62 kg

DRUGS (2)
  1. HUMIRA [Suspect]
     Active Substance: ADALIMUMAB
     Indication: RHEUMATOID ARTHRITIS
     Route: 058
     Dates: end: 20110418
  2. AMIODARONE [Concomitant]
     Active Substance: AMIODARONE
     Indication: CARDIAC DISORDER
     Dosage: IN THE MORNING
     Route: 048
     Dates: start: 2004

REACTIONS (12)
  - Pneumonia [Not Recovered/Not Resolved]
  - Infection [Fatal]
  - Peripheral swelling [Recovering/Resolving]
  - Nosocomial infection [Not Recovered/Not Resolved]
  - Multi-organ failure [Fatal]
  - Femur fracture [Recovered/Resolved]
  - Thrombosis [Recovering/Resolving]
  - Fall [Recovered/Resolved]
  - Mobility decreased [Recovering/Resolving]
  - Fall [Recovered/Resolved]
  - Coronary artery occlusion [Recovered/Resolved]
  - Femur fracture [Recovered/Resolved]

NARRATIVE: CASE EVENT DATE: 200911
